FAERS Safety Report 5950693-2 (Version None)
Quarter: 2008Q4

REPORT INFORMATION
  Report Type: 
  Country: None (occurrence: None)
  Receive Date: 20081112
  Receipt Date: 20081105
  Transmission Date: 20090506
  Serious: Yes (Other)
  Sender: FDA-Public Use
  Company Number: US-JNJCH-2008052924

PATIENT
  Age: 80 Year
  Sex: Male
  Weight: 72.6 kg

DRUGS (3)
  1. BENADRYL [Suspect]
     Indication: HYPERSENSITIVITY
     Route: 048
  2. DRUG, UNSPECIFIED [Concomitant]
     Indication: BLOOD PRESSURE
     Dosage: TEXT:UNKNOWN
     Route: 065
  3. SYNTHROID [Concomitant]
     Indication: THYROID DISORDER
     Dosage: TEXT:UNKNOWN
     Route: 065

REACTIONS (2)
  - GASTRIC HAEMORRHAGE [None]
  - HAEMATURIA [None]
